FAERS Safety Report 15148376 (Version 1)
Quarter: 2018Q3

REPORT INFORMATION
  Report Type: Spontaneous
  Country: GB (occurrence: GB)
  Receive Date: 20180716
  Receipt Date: 20180716
  Transmission Date: 20181010
  Serious: Yes (Hospitalization)
  Sender: FDA-Public Use
  Company Number: GB-PFIZER INC-2018281930

PATIENT
  Age: 65 Year
  Sex: Female

DRUGS (3)
  1. FRUSEMIDE /00032601/ [Concomitant]
     Active Substance: FUROSEMIDE
     Indication: SUPPORTIVE CARE
     Dosage: UNK, INFUSION
  2. METHYLPREDNISOLONE SODIUM SUCCINATE. [Suspect]
     Active Substance: METHYLPREDNISOLONE SODIUM SUCCINATE
     Indication: ALVEOLITIS ALLERGIC
     Dosage: HIGH?DOSE PULSED METHYLPREDNISOLONE, (3?DAY REGIME)
     Route: 042
  3. PREDNISOLONE. [Concomitant]
     Active Substance: PREDNISOLONE
     Indication: ALVEOLITIS ALLERGIC
     Dosage: UNK (WEANING DOSE)
     Route: 048

REACTIONS (1)
  - Stress cardiomyopathy [Recovered/Resolved]
